FAERS Safety Report 9772551 (Version 1)
Quarter: 2013Q4

REPORT INFORMATION
  Report Type: Spontaneous
  Country: US (occurrence: None)
  Receive Date: 20131218
  Receipt Date: 20131218
  Transmission Date: 20140711
  Serious: Yes (Hospitalization)
  Sender: FDA-Public Use
  Company Number: 2013CT000087

PATIENT
  Age: 30 Year
  Sex: Female

DRUGS (3)
  1. KORLYM [Suspect]
     Indication: PITUITARY-DEPENDENT CUSHING^S SYNDROME
     Route: 048
     Dates: start: 201308
  2. LOSARTAN [Concomitant]
  3. SPIRONOLACTONE [Concomitant]

REACTIONS (5)
  - Blood potassium decreased [None]
  - Hypertension [None]
  - Nausea [None]
  - Dizziness [None]
  - Fatigue [None]
